FAERS Safety Report 16957366 (Version 1)
Quarter: 2019Q4

REPORT INFORMATION
  Report Type: Spontaneous
  Country: US (occurrence: US)
  Receive Date: 20191024
  Receipt Date: 20191024
  Transmission Date: 20200122
  Serious: Yes (Hospitalization, Other)
  Sender: FDA-Public Use
  Company Number: US-GLAXOSMITHKLINE-US2019188913

PATIENT
  Sex: Female

DRUGS (2)
  1. LASIX [Concomitant]
     Active Substance: FUROSEMIDE
     Indication: PRODUCT USED FOR UNKNOWN INDICATION
     Dosage: UNK
     Route: 065
  2. BENLYSTA [Suspect]
     Active Substance: BELIMUMAB
     Indication: PRODUCT USED FOR UNKNOWN INDICATION
     Dosage: UNK UNK, CYC
     Route: 042
     Dates: start: 2018

REACTIONS (7)
  - Abdominal distension [Unknown]
  - Product dose omission [Unknown]
  - Pulmonary hypertension [Unknown]
  - Peripheral swelling [Unknown]
  - Malaise [Unknown]
  - Influenza [Unknown]
  - Catheter placement [Unknown]

NARRATIVE: CASE EVENT DATE: 2019
